FAERS Safety Report 8299520-1 (Version None)
Quarter: 2012Q2

REPORT INFORMATION
  Report Type: 
  Country: None (occurrence: None)
  Receive Date: 20120419
  Receipt Date: 20120412
  Transmission Date: 20120825
  Serious: Yes (Hospitalization, Other)
  Sender: FDA-Public Use
  Company Number: DE-ABBOTT-12P-062-0924980-00

PATIENT
  Sex: Male
  Weight: 89.1 kg

DRUGS (9)
  1. HUMIRA [Suspect]
     Route: 058
  2. METOPROLOL TARTRATE [Concomitant]
     Indication: HYPERTENSION
     Dosage: 0.5 TAB BID
     Route: 048
     Dates: start: 20100401
  3. TAMSULOSIN HCL [Concomitant]
     Indication: PRODUCT USED FOR UNKNOWN INDICATION
     Route: 048
  4. ASPIRIN [Concomitant]
     Indication: PRODUCT USED FOR UNKNOWN INDICATION
     Route: 048
  5. PANTOPRAZOLE [Concomitant]
     Indication: PRODUCT USED FOR UNKNOWN INDICATION
     Route: 048
  6. HUMIRA [Suspect]
     Indication: RHEUMATOID ARTHRITIS
     Route: 058
     Dates: start: 20080807, end: 20111027
  7. PENTAERYTHRITOL TETRANITRATE [Concomitant]
     Indication: CORONARY ARTERY DISEASE
     Route: 048
     Dates: start: 20100401
  8. SIMVASTATIN [Concomitant]
     Indication: LIPID METABOLISM DISORDER
     Route: 048
  9. VALORON [Concomitant]
     Indication: RHEUMATOID ARTHRITIS
     Dosage: 200/8MG DAILY
     Route: 048
     Dates: start: 20110210

REACTIONS (7)
  - PYREXIA [None]
  - ANAEMIA [None]
  - GENERAL PHYSICAL HEALTH DETERIORATION [None]
  - IRON DEFICIENCY ANAEMIA [None]
  - OCCULT BLOOD [None]
  - UROSEPSIS [None]
  - PAIN IN EXTREMITY [None]
